FAERS Safety Report 8390525-9 (Version None)
Quarter: 2012Q2

REPORT INFORMATION
  Report Type: 
  Country: None (occurrence: None)
  Receive Date: 20120529
  Receipt Date: 20110608
  Transmission Date: 20120825
  Serious: Yes (Other)
  Sender: FDA-Public Use
  Company Number: IT-PFIZER INC-2012126585

PATIENT
  Age: 73 Year
  Sex: Male

DRUGS (1)
  1. SUTENT [Suspect]
     Indication: RENAL CELL CARCINOMA
     Dosage: 50 MG, 1X/DAY
     Route: 048
     Dates: start: 20080404, end: 20080502

REACTIONS (4)
  - EPISTAXIS [None]
  - HYPERTENSIVE CRISIS [None]
  - THROMBOCYTOPENIA [None]
  - MUCOSAL INFLAMMATION [None]
